FAERS Safety Report 9561339 (Version 1)
Quarter: 2013Q3

REPORT INFORMATION
  Report Type: Spontaneous
  Country: FR (occurrence: None)
  Receive Date: 20130925
  Receipt Date: 20130925
  Transmission Date: 20140515
  Serious: Yes (Hospitalization)
  Sender: FDA-Public Use
  Company Number: 1891672

PATIENT
  Age: 46 Year
  Sex: Female

DRUGS (5)
  1. (CARBOPLATIN) [Suspect]
     Indication: MALIGNANT PERITONEAL NEOPLASM
     Dosage: 82- MG MILLIGRAM(S), 1 DAY, INTRAVENOUS DRIP (1 DAY)
     Route: 041
     Dates: start: 20120529, end: 20120529
  2. PACLITAXEL [Suspect]
     Indication: MALIGNANT PERITONEAL NEOPLASM
     Dosage: 330 MG MILLIGRAM(S), 1 DAY, INTRAVENOUS (NOT OTHERWISE SPECIFIED)  ?(1 DAY)
     Route: 042
     Dates: start: 20120529, end: 20120529
  3. (POLARAMINE) [Concomitant]
  4. (ZOPHREN /00955301/) [Concomitant]
  5. (AZANTAC) [Concomitant]

REACTIONS (6)
  - Back pain [None]
  - Oxygen saturation decreased [None]
  - Dyspnoea [None]
  - Malaise [None]
  - Asthenia [None]
  - Hypersensitivity [None]
